FAERS Safety Report 16787941 (Version 2)
Quarter: 2019Q4

REPORT INFORMATION
  Report Type: Report from Study
  Country: US (occurrence: US)
  Receive Date: 20190909
  Receipt Date: 20191016
  Transmission Date: 20200122
  Serious: Yes (Other)
  Sender: FDA-Public Use
  Company Number: PHEH2019US036796

PATIENT
  Sex: Female

DRUGS (1)
  1. ILARIS [Suspect]
     Active Substance: CANAKINUMAB
     Indication: BEHCET^S SYNDROME
     Dosage: 150 MG, EVERY 8 WEEKS
     Route: 058

REACTIONS (2)
  - Behcet^s syndrome [Unknown]
  - Product use in unapproved indication [Unknown]
